FAERS Safety Report 5229231-8 (Version None)
Quarter: 2007Q1

REPORT INFORMATION
  Report Type: 
  Country: None (occurrence: None)
  Receive Date: 20061201
  Receipt Date: 20060803
  Transmission Date: 20070707
  Serious: No
  Sender: FDA-Public Use
  Company Number: US200608000978

PATIENT
  Age: 68 Year
  Sex: Female

DRUGS (5)
  1. CYMBALTA [Suspect]
     Indication: ARTHRITIS
     Dosage: 60 MG
     Dates: start: 20060701
  2. EFFEXOR [Concomitant]
  3. TRAZODONE HCL [Concomitant]
  4. ALLEGRA [Concomitant]
  5. TOPAMAX    /AUS/(TOPIRAMATE) [Concomitant]

REACTIONS (2)
  - FOOD CRAVING [None]
  - INCREASED APPETITE [None]
